FAERS Safety Report 19285647 (Version 1)
Quarter: 2021Q2

REPORT INFORMATION
  Report Type: Report from Study
  Country: DE (occurrence: DE)
  Receive Date: 20210521
  Receipt Date: 20210521
  Transmission Date: 20210717
  Serious: Yes (Hospitalization)
  Sender: FDA-Public Use
  Company Number: DE-MYLANLABS-2021M1029215

PATIENT
  Age: 53 Year
  Sex: Female
  Weight: 70 kg

DRUGS (7)
  1. PERTUZUMAB. [Suspect]
     Active Substance: PERTUZUMAB
     Indication: BREAST CANCER
     Dosage: MOST RECENT DOSE ON 29/MAR/2018.
     Route: 042
     Dates: start: 20180117
  2. TRASTUZUMAB MYLAN [Suspect]
     Active Substance: TRASTUZUMAB
     Indication: BREAST CANCER
     Dosage: 560 MILLIGRAM, 3XW
     Route: 042
     Dates: start: 20180117
  3. DOCETAXEL MYLAN [Suspect]
     Active Substance: DOCETAXEL
     Dosage: MOST RECENT DOSE ON 29/MAR/2018.
     Route: 042
     Dates: start: 20180117
  4. TRASTUZUMAB MYLAN [Suspect]
     Active Substance: TRASTUZUMAB
     Dosage: MOST RECENT DOSE ON 29/MAR/2018.
     Route: 042
     Dates: start: 20180117
  5. DOCETAXEL MYLAN [Suspect]
     Active Substance: DOCETAXEL
     Indication: BREAST CANCER
     Dosage: 125 MILLIGRAM, 3XW
     Route: 042
     Dates: start: 20180117
  6. CARBOPLATIN. [Suspect]
     Active Substance: CARBOPLATIN
     Indication: BREAST CANCER
     Dosage: 600 MILLIGRAM, 3XW
     Route: 042
     Dates: start: 20180419
  7. PERTUZUMAB. [Suspect]
     Active Substance: PERTUZUMAB
     Dosage: 840 MILLIGRAM, 3XW
     Route: 042
     Dates: start: 20180117

REACTIONS (7)
  - Gastric ulcer [Recovered/Resolved]
  - Nausea [Recovered/Resolved]
  - Oedema peripheral [Recovered/Resolved]
  - Vomiting [Recovered/Resolved]
  - Anaemia [Recovered/Resolved]
  - Duodenal ulcer [Recovered/Resolved]
  - Diarrhoea [Recovered/Resolved]

NARRATIVE: CASE EVENT DATE: 20180124
